FAERS Safety Report 5137152-4 (Version None)
Quarter: 2006Q4

REPORT INFORMATION
  Report Type: 
  Country: None (occurrence: None)
  Receive Date: 20061030
  Receipt Date: 20050901
  Transmission Date: 20070319
  Serious: No
  Sender: FDA-Public Use
  Company Number: US-GLAXOSMITHKLINE-A0572734A

PATIENT
  Age: 47 Year
  Sex: Male

DRUGS (3)
  1. ADVAIR HFA [Suspect]
     Indication: ASTHMA
     Route: 055
  2. ALLEGRA [Concomitant]
  3. BECONASE [Concomitant]

REACTIONS (3)
  - DRUG INEFFECTIVE [None]
  - STOMACH DISCOMFORT [None]
  - VOMITING [None]
